FAERS Safety Report 8000747 (Version 4)
Quarter: 2012Q4

REPORT INFORMATION
  Report Type: 
  Country: US (occurrence: US)
  Receive Date: 20110621
  Receipt Date: 20121210
  Transmission Date: 20130627
  Serious: Yes (Disabling, Other)
  Sender: FDA-Public Use
  Company Number: US-ASTRAZENECA-2010SE49826

PATIENT
  Age: 65 Year
  Sex: Male
  Weight: 70.8 kg

DRUGS (6)
  1. PULMICORT FLEXHALER [Suspect]
     Indication: ASTHMA
     Dosage: 180MCG, THREE TIMES A DAY
     Route: 055
  2. PULMICORT FLEXHALER [Suspect]
     Indication: ASTHMA
     Dosage: 180MCG, THREE PUFFS TWO TIMES A DAY
     Route: 055
  3. PULMICORT FLEXHALER [Suspect]
     Indication: ASTHMA
     Dosage: 180MCG, THREE PUFFS TWO TIMES A DAY
     Route: 055
  4. SEREVENT DISKUS [Concomitant]
  5. SYNTHROID [Concomitant]
  6. ALBUTEROL [Concomitant]

REACTIONS (6)
  - Asthma [Recovered/Resolved]
  - Malaise [Not Recovered/Not Resolved]
  - Memory impairment [Unknown]
  - Drug dose omission [Unknown]
  - Cough [Recovering/Resolving]
  - Intentional drug misuse [Unknown]
